FAERS Safety Report 20899906 (Version 5)
Quarter: 2022Q3

REPORT INFORMATION
  Report Type: Report from Study
  Country: US (occurrence: US)
  Receive Date: 20220601
  Receipt Date: 20220729
  Transmission Date: 20221027
  Serious: No
  Sender: FDA-Public Use
  Company Number: US-NOVARTISTESTPH-NVSC2022US125832

PATIENT
  Sex: Male

DRUGS (2)
  1. ENTRESTO [Suspect]
     Active Substance: SACUBITRIL\VALSARTAN
     Indication: Ejection fraction decreased
     Dosage: 50 MG, (24/26 MG)BID
     Route: 048
     Dates: start: 20220527
  2. ENTRESTO [Suspect]
     Active Substance: SACUBITRIL\VALSARTAN
     Dosage: 200 MG (97/103)
     Route: 048
     Dates: start: 202206

REACTIONS (3)
  - Hypoacusis [Unknown]
  - General physical health deterioration [Recovering/Resolving]
  - Product use issue [Unknown]
